FAERS Safety Report 21147995 (Version 2)
Quarter: 2022Q3

REPORT INFORMATION
  Report Type: Spontaneous
  Country: US (occurrence: None)
  Receive Date: 20220729
  Receipt Date: 20220809
  Transmission Date: 20221027
  Serious: Yes (Life-Threatening, Hospitalization, Other)
  Sender: FDA-Public Use
  Company Number: US-MICRO LABS LIMITED-ML2022-03544

PATIENT
  Age: 14 Year
  Sex: Male

DRUGS (15)
  1. BUPROPION [Suspect]
     Active Substance: BUPROPION
     Route: 048
  2. FLUOXETINE [Suspect]
     Active Substance: FLUOXETINE HYDROCHLORIDE
     Indication: Depression
     Route: 048
  3. FLUOXETINE [Suspect]
     Active Substance: FLUOXETINE HYDROCHLORIDE
     Indication: Anxiety
  4. CYPROHEPTADINE [Suspect]
     Active Substance: CYPROHEPTADINE
     Route: 048
  5. ESCITALOPRAM. [Concomitant]
     Indication: Anxiety
  6. ESCITALOPRAM. [Concomitant]
     Indication: Depression
  7. HALOPERIDOL [Concomitant]
     Active Substance: HALOPERIDOL
     Indication: Agitation
  8. HALOPERIDOL [Concomitant]
     Active Substance: HALOPERIDOL
     Indication: Seizure
  9. DIPHENHYDRAMINE. [Concomitant]
     Indication: Agitation
  10. DIPHENHYDRAMINE. [Concomitant]
     Indication: Seizure
  11. LORAZEPAM [Concomitant]
     Active Substance: LORAZEPAM
     Indication: Agitation
  12. LORAZEPAM [Concomitant]
     Active Substance: LORAZEPAM
     Indication: Seizure
  13. MIDAZOLAM [Concomitant]
     Active Substance: MIDAZOLAM
     Indication: Agitation
     Route: 042
  14. CLONIDINE [Concomitant]
     Active Substance: CLONIDINE
     Indication: Anxiety
  15. CLONIDINE [Concomitant]
     Active Substance: CLONIDINE
     Indication: Depression

REACTIONS (16)
  - Toxicity to various agents [Recovered/Resolved]
  - Intentional product misuse [Unknown]
  - Gastric hypomotility [Recovered/Resolved]
  - Condition aggravated [Recovered/Resolved]
  - Generalised tonic-clonic seizure [Recovered/Resolved]
  - Bezoar [Recovered/Resolved]
  - Drug clearance decreased [Recovered/Resolved]
  - Hyperthermia [Recovered/Resolved]
  - Respiratory failure [Recovered/Resolved]
  - Hyperreflexia [Recovered/Resolved]
  - Clonus [Recovered/Resolved]
  - Hypertension [Recovered/Resolved]
  - Muscle rigidity [Recovered/Resolved]
  - Tachycardia [Recovered/Resolved]
  - Aggression [Recovered/Resolved]
  - Mental status changes [Recovered/Resolved]
